FAERS Safety Report 7289324-0 (Version None)
Quarter: 2011Q1

REPORT INFORMATION
  Report Type: 
  Country: None (occurrence: None)
  Receive Date: 20110211
  Receipt Date: 20110207
  Transmission Date: 20110831
  Serious: Yes (Hospitalization)
  Sender: FDA-Public Use
  Company Number: DE-ABBOTT-11P-062-0703454-00

PATIENT
  Age: 48 Year
  Sex: Female

DRUGS (3)
  1. ETANERCEPT [Concomitant]
     Indication: RHEUMATOID ARTHRITIS
     Dates: start: 20100401
  2. HUMIRA [Suspect]
     Indication: RHEUMATOID ARTHRITIS
     Route: 058
     Dates: start: 20060301, end: 20080501
  3. HUMIRA [Suspect]
     Route: 058
     Dates: start: 20080701, end: 20100101

REACTIONS (1)
  - STASIS DERMATITIS [None]
